FAERS Safety Report 6742855-1 (Version None)
Quarter: 2010Q2

REPORT INFORMATION
  Report Type: 
  Country: None (occurrence: None)
  Receive Date: 20100525
  Receipt Date: 20100510
  Transmission Date: 20101027
  Serious: Yes (Other)
  Sender: FDA-Public Use
  Company Number: 2010-1222

PATIENT
  Age: 35 Year
  Sex: Female

DRUGS (2)
  1. DYSPORT [Suspect]
     Indication: SKIN WRINKLING
     Dosage: 60 UNITS (60 UNITS,SINGLE CYCLE), INTRAMUSCULAR
     Route: 030
     Dates: start: 20100317, end: 20100317
  2. BOTULINUM TOXIN TYPE A [Suspect]

REACTIONS (4)
  - ARTHRALGIA [None]
  - ARTHROPATHY [None]
  - MUSCULAR WEAKNESS [None]
  - MUSCULOSKELETAL PAIN [None]
